FAERS Safety Report 16719711 (Version 5)
Quarter: 2019Q3

REPORT INFORMATION
  Report Type: Spontaneous
  Country: US (occurrence: US)
  Receive Date: 20190820
  Receipt Date: 20190924
  Transmission Date: 20191005
  Serious: No
  Sender: FDA-Public Use
  Company Number: US-PFIZER INC-2019271954

PATIENT
  Age: 31 Year
  Sex: Female

DRUGS (5)
  1. LYRICA [Suspect]
     Active Substance: PREGABALIN
     Indication: ARTHRODESIS
  2. LYRICA [Suspect]
     Active Substance: PREGABALIN
     Indication: EXTRADURAL ABSCESS
  3. LYRICA [Suspect]
     Active Substance: PREGABALIN
     Indication: QUADRIPLEGIA
  4. LYRICA [Suspect]
     Active Substance: PREGABALIN
     Indication: SPINAL FUSION SURGERY
  5. LYRICA [Suspect]
     Active Substance: PREGABALIN
     Indication: PAIN
     Dosage: 300 MG, 2X/DAY
     Route: 048

REACTIONS (2)
  - Therapeutic product effect decreased [Unknown]
  - Skin burning sensation [Unknown]
